FAERS Safety Report 6909613-6 (Version None)
Quarter: 2010Q3

REPORT INFORMATION
  Report Type: 
  Country: None (occurrence: None)
  Receive Date: 20100805
  Receipt Date: 20100625
  Transmission Date: 20110219
  Serious: No
  Sender: FDA-Public Use
  Company Number: US-TYCO HEALTHCARE/MALLINCKRODT-T201001529

PATIENT
  Sex: Female
  Weight: 58.05 kg

DRUGS (4)
  1. FENTANYL CITRATE [Suspect]
     Indication: RHEUMATOID ARTHRITIS
     Dosage: 200 UG, ONE QD
     Dates: start: 20100501
  2. TOPROL-XL [Concomitant]
     Indication: HYPERTENSION
     Dosage: 25 MG, QD
     Route: 048
  3. EFFEXOR [Concomitant]
     Indication: NIGHT SWEATS
     Dosage: 150 MG, QD
     Route: 048
  4. KAPIDEX [Concomitant]
     Indication: GASTRIC ULCER
     Dosage: 60 MG, QD
     Route: 048

REACTIONS (2)
  - DRUG EFFECT DECREASED [None]
  - OFF LABEL USE [None]
